FAERS Safety Report 4634737-6 (Version None)
Quarter: 2005Q2

REPORT INFORMATION
  Report Type: 
  Country: None (occurrence: None)
  Receive Date: 20050413
  Receipt Date: 20050413
  Transmission Date: 20051028
  Serious: Yes (Other)
  Sender: FDA-Public Use
  Company Number: None

PATIENT
  Age: 17 Year
  Sex: Female
  Weight: 58.9676 kg

DRUGS (1)
  1. ACCUTANE [Suspect]
     Indication: ACNE
     Dosage: 40 MG PO QD
     Route: 048
     Dates: start: 20050201

REACTIONS (3)
  - EDUCATIONAL PROBLEM [None]
  - HEADACHE [None]
  - NAUSEA [None]
